FAERS Safety Report 7656392-3 (Version None)
Quarter: 2011Q3

REPORT INFORMATION
  Report Type: 
  Country: None (occurrence: None)
  Receive Date: 20110804
  Receipt Date: 20110729
  Transmission Date: 20111222
  Serious: Yes (Death)
  Sender: FDA-Public Use
  Company Number: US-GLAXOSMITHKLINE-A0939114A

PATIENT
  Age: 85 Year
  Sex: Female

DRUGS (3)
  1. ARIXTRA [Suspect]
     Indication: ANTICOAGULANT THERAPY
     Dosage: 5MG PER DAY
     Route: 058
     Dates: start: 20110515, end: 20110724
  2. HYDROCODONE [Concomitant]
  3. MORPHINE [Concomitant]

REACTIONS (1)
  - METASTASIS [None]
